FAERS Safety Report 6930515-3 (Version None)
Quarter: 2010Q3

REPORT INFORMATION
  Report Type: 
  Country: None (occurrence: None)
  Receive Date: 20100818
  Receipt Date: 20100811
  Transmission Date: 20110219
  Serious: Yes (Hospitalization)
  Sender: FDA-Public Use
  Company Number: A0862074A

PATIENT
  Age: 61 Year
  Sex: Male

DRUGS (1)
  1. AVANDIA [Suspect]
     Route: 065
     Dates: start: 20000117, end: 20060519

REACTIONS (3)
  - ACUTE MYOCARDIAL INFARCTION [None]
  - CORONARY ARTERY BYPASS [None]
  - PAIN [None]
